FAERS Safety Report 15409291 (Version 2)
Quarter: 2018Q3

REPORT INFORMATION
  Report Type: Spontaneous
  Country: PH (occurrence: PH)
  Receive Date: 20180920
  Receipt Date: 20180925
  Transmission Date: 20181010
  Serious: Yes (Death, Life-Threatening)
  Sender: FDA-Public Use
  Company Number: PH-GUERBET-PH-20180006

PATIENT
  Age: 43 Year
  Sex: Female

DRUGS (1)
  1. OPTIRAY 300 [Suspect]
     Active Substance: IOVERSOL
     Indication: SCAN
     Route: 065
     Dates: start: 20180907, end: 20180907

REACTIONS (1)
  - Aortic aneurysm [Fatal]

NARRATIVE: CASE EVENT DATE: 20180907
